FAERS Safety Report 8667567 (Version 18)
Quarter: 2013Q4

REPORT INFORMATION
  Report Type: Report from Study
  Country: JP (occurrence: JP)
  Receive Date: 20120717
  Receipt Date: 20131106
  Transmission Date: 20140711
  Serious: Yes (Death, Hospitalization, Other)
  Sender: FDA-Public Use
  Company Number: JP-MSD-1207JPN000299

PATIENT
  Age: 75 Year
  Sex: Female
  Weight: 54 kg

DRUGS (46)
  1. VORINOSTAT [Suspect]
     Indication: B-CELL LYMPHOMA RECURRENT
     Dosage: 400 MG QD
     Route: 048
     Dates: start: 20091030, end: 20091108
  2. VORINOSTAT [Suspect]
     Dosage: 200 MG QD
     Route: 048
     Dates: start: 20091109, end: 20091109
  3. VORINOSTAT [Suspect]
     Dosage: 300 MG, QD
     Route: 048
     Dates: start: 20091127, end: 20091206
  4. VORINOSTAT [Suspect]
     Dosage: 200 MG, QD
     Route: 048
     Dates: start: 20091207, end: 20091207
  5. VORINOSTAT [Suspect]
     Dosage: 200 MG, QD
     Route: 048
     Dates: start: 20091225, end: 20100107
  6. VORINOSTAT [Suspect]
     Dosage: 200 MG, QD
     Route: 048
     Dates: start: 20100123, end: 20100205
  7. VORINOSTAT [Suspect]
     Dosage: 200 MG, QD
     Route: 048
     Dates: start: 20100220, end: 20100305
  8. VORINOSTAT [Suspect]
     Dosage: 200 MG, QD
     Route: 048
     Dates: start: 20100320, end: 20100402
  9. VORINOSTAT [Suspect]
     Dosage: 200 MG, QD
     Route: 048
     Dates: start: 20100417, end: 20100430
  10. VORINOSTAT [Suspect]
     Dosage: 200 MG, QD
     Route: 048
     Dates: start: 20100515, end: 20100528
  11. VORINOSTAT [Suspect]
     Dosage: 200 MG, QD
     Route: 048
     Dates: start: 20100612, end: 20100625
  12. VORINOSTAT [Suspect]
     Dosage: 200 MG, QD
     Route: 048
     Dates: start: 20100710, end: 20100723
  13. VORINOSTAT [Suspect]
     Dosage: 200 MG, QD
     Route: 048
     Dates: start: 20100807, end: 20100811
  14. VORINOSTAT [Suspect]
     Dosage: 100 MG, QD
     Route: 048
     Dates: start: 20100812, end: 20100812
  15. VORINOSTAT [Suspect]
     Dosage: 200 MG, QD
     Route: 048
     Dates: start: 20100813, end: 20100820
  16. VORINOSTAT [Suspect]
     Dosage: 200 MG, QD
     Route: 048
     Dates: start: 20100828, end: 20100910
  17. VORINOSTAT [Suspect]
     Dosage: 200 MG, QD
     Route: 048
     Dates: start: 20100925, end: 20101008
  18. VORINOSTAT [Suspect]
     Dosage: 200 MG, QD
     Route: 048
     Dates: start: 20101023, end: 20101105
  19. VORINOSTAT [Suspect]
     Dosage: 200 MG, QD
     Route: 048
     Dates: start: 20101120, end: 20101203
  20. VORINOSTAT [Suspect]
     Dosage: 200 MG, QD
     Route: 048
     Dates: start: 20101218, end: 20101231
  21. VORINOSTAT [Suspect]
     Dosage: 200 MG, QD
     Route: 048
     Dates: start: 20110115, end: 20110128
  22. VORINOSTAT [Suspect]
     Dosage: 200 MG, QD
     Route: 048
     Dates: start: 20100212, end: 20100225
  23. VORINOSTAT [Suspect]
     Dosage: 200 MG, QD
     Route: 048
     Dates: start: 20110312, end: 20110325
  24. VORINOSTAT [Suspect]
     Dosage: 200 MG, QD
     Route: 048
     Dates: start: 20110402, end: 20110415
  25. VORINOSTAT [Suspect]
     Dosage: 200 MG, QD
     Route: 048
     Dates: start: 20110423, end: 20110506
  26. VORINOSTAT [Suspect]
     Dosage: 200 MG, QD
     Route: 048
     Dates: start: 20110514, end: 20110527
  27. VORINOSTAT [Suspect]
     Dosage: 200 MG, QD
     Route: 048
     Dates: start: 20110604, end: 20110617
  28. VORINOSTAT [Suspect]
     Dosage: 200 MG, QD
     Route: 048
     Dates: start: 20110625, end: 20110708
  29. VORINOSTAT [Suspect]
     Dosage: 200 MG, QD
     Route: 048
     Dates: start: 20110716, end: 20110729
  30. VORINOSTAT [Suspect]
     Dosage: 200 MG, QD
     Route: 048
     Dates: start: 20110806, end: 20110819
  31. VORINOSTAT [Suspect]
     Dosage: 200 MG, QD
     Route: 048
     Dates: start: 20110827, end: 20110909
  32. VORINOSTAT [Suspect]
     Dosage: 200 MG, QD
     Route: 048
     Dates: start: 20110917, end: 20110930
  33. VORINOSTAT [Suspect]
     Dosage: 200 MG, QD
     Route: 048
     Dates: start: 20111008, end: 20111021
  34. VORINOSTAT [Suspect]
     Dosage: 200 MG, QD
     Route: 048
     Dates: start: 20111029, end: 20111111
  35. VORINOSTAT [Suspect]
     Dosage: 200 MG, QD
     Route: 048
     Dates: start: 20111119, end: 20111202
  36. VORINOSTAT [Suspect]
     Dosage: 200 MG, QD
     Route: 048
     Dates: start: 20111210, end: 20111223
  37. VORINOSTAT [Suspect]
     Dosage: 200 MG, QD
     Route: 048
     Dates: start: 20111231, end: 20120113
  38. VORINOSTAT [Suspect]
     Dosage: 200 MG, QD
     Route: 048
     Dates: start: 20120128, end: 20120210
  39. VORINOSTAT [Suspect]
     Dosage: 200 MG, QD
     Route: 048
     Dates: start: 20120218, end: 20120302
  40. VORINOSTAT [Suspect]
     Dosage: 200 MG, QD
     Route: 048
     Dates: start: 20120310, end: 20120323
  41. BAKTAR [Concomitant]
     Indication: INFECTION PROPHYLAXIS
     Dosage: 1 DF, QOD
     Route: 048
     Dates: start: 20090410, end: 20120719
  42. FAMOTIDINE D [Concomitant]
     Indication: GASTRITIS
     Dosage: 20 MG, BID
     Route: 048
     Dates: start: 20080610
  43. MYSLEE [Concomitant]
     Indication: INSOMNIA
     Dosage: 5 MG, QD
     Route: 048
     Dates: start: 20080314
  44. NORVASC [Concomitant]
     Indication: HYPERTENSION
     Dosage: 2.5 MG, QD
     Route: 048
     Dates: start: 20100911, end: 20120814
  45. MAGLAX [Concomitant]
     Indication: CONSTIPATION
     Dosage: 1980 MG, PRN
     Route: 048
     Dates: start: 20080716
  46. SENNOSIDES [Concomitant]
     Indication: CONSTIPATION
     Dosage: UNK, PRN
     Route: 048
     Dates: start: 20080711

REACTIONS (2)
  - Myelodysplastic syndrome [Fatal]
  - Pneumonia [Fatal]
